FAERS Safety Report 19812009 (Version 8)
Quarter: 2022Q3

REPORT INFORMATION
  Report Type: Report from Study
  Country: US (occurrence: US)
  Receive Date: 20210909
  Receipt Date: 20220714
  Transmission Date: 20221026
  Serious: Yes (Hospitalization, Other)
  Sender: FDA-Public Use
  Company Number: US-TAKEDA-2021TUS056071

PATIENT
  Sex: Male

DRUGS (16)
  1. TEDUGLUTIDE [Suspect]
     Active Substance: TEDUGLUTIDE
     Indication: Short-bowel syndrome
     Dosage: 0.3 MILLIGRAM, QD
     Route: 058
     Dates: start: 20210525
  2. TEDUGLUTIDE [Suspect]
     Active Substance: TEDUGLUTIDE
     Indication: Short-bowel syndrome
     Dosage: 0.3 MILLIGRAM, QD
     Route: 058
     Dates: start: 20210525
  3. TEDUGLUTIDE [Suspect]
     Active Substance: TEDUGLUTIDE
     Indication: Short-bowel syndrome
     Dosage: 0.3 MILLIGRAM, QD
     Route: 058
     Dates: start: 20210525
  4. TEDUGLUTIDE [Suspect]
     Active Substance: TEDUGLUTIDE
     Indication: Short-bowel syndrome
     Dosage: 0.3 MILLIGRAM, QD
     Route: 058
     Dates: start: 20210525
  5. TEDUGLUTIDE [Suspect]
     Active Substance: TEDUGLUTIDE
     Dosage: 0.03 MILLILITER
     Route: 058
     Dates: start: 20210526
  6. TEDUGLUTIDE [Suspect]
     Active Substance: TEDUGLUTIDE
     Dosage: 0.03 MILLILITER
     Route: 058
     Dates: start: 20210526
  7. TEDUGLUTIDE [Suspect]
     Active Substance: TEDUGLUTIDE
     Dosage: 0.03 MILLILITER
     Route: 058
     Dates: start: 20210526
  8. TEDUGLUTIDE [Suspect]
     Active Substance: TEDUGLUTIDE
     Dosage: 0.03 MILLILITER
     Route: 058
     Dates: start: 20210526
  9. TEDUGLUTIDE [Suspect]
     Active Substance: TEDUGLUTIDE
     Dosage: 0.3 MILLIGRAM, QD
     Route: 058
     Dates: start: 202105
  10. TEDUGLUTIDE [Suspect]
     Active Substance: TEDUGLUTIDE
     Dosage: 0.3 MILLIGRAM, QD
     Route: 058
     Dates: start: 202105
  11. TEDUGLUTIDE [Suspect]
     Active Substance: TEDUGLUTIDE
     Dosage: 0.3 MILLIGRAM, QD
     Route: 058
     Dates: start: 202105
  12. TEDUGLUTIDE [Suspect]
     Active Substance: TEDUGLUTIDE
     Dosage: 0.3 MILLIGRAM, QD
     Route: 058
     Dates: start: 202105
  13. TEDUGLUTIDE [Suspect]
     Active Substance: TEDUGLUTIDE
     Dosage: 0.7 MILLIGRAM, QD
     Route: 058
     Dates: start: 20210526
  14. TEDUGLUTIDE [Suspect]
     Active Substance: TEDUGLUTIDE
     Dosage: 0.7 MILLIGRAM, QD
     Route: 058
     Dates: start: 20210526
  15. TEDUGLUTIDE [Suspect]
     Active Substance: TEDUGLUTIDE
     Dosage: 0.7 MILLIGRAM, QD
     Route: 058
     Dates: start: 20210526
  16. TEDUGLUTIDE [Suspect]
     Active Substance: TEDUGLUTIDE
     Dosage: 0.7 MILLIGRAM, QD
     Route: 058
     Dates: start: 20210526

REACTIONS (14)
  - Hospitalisation [Unknown]
  - Vascular device infection [Unknown]
  - Abscess [Unknown]
  - Gastrointestinal stoma output increased [Unknown]
  - Irritability [Unknown]
  - Platelet count decreased [Unknown]
  - Tachycardia [Unknown]
  - Sepsis [Unknown]
  - Stoma site oedema [Unknown]
  - Gastrointestinal sounds abnormal [Unknown]
  - Therapy interrupted [Unknown]
  - Flatulence [Unknown]
  - Abdominal distension [Unknown]
  - Product dose omission issue [Unknown]
